FAERS Safety Report 4957889-7 (Version None)
Quarter: 2006Q1

REPORT INFORMATION
  Report Type: 
  Country: None (occurrence: None)
  Receive Date: 20060330
  Receipt Date: 20060220
  Transmission Date: 20060701
  Serious: Yes (Other)
  Sender: FDA-Public Use
  Company Number: 2006UW02819

PATIENT
  Sex: Male
  Weight: 93 kg

DRUGS (4)
  1. SEROQUEL [Suspect]
     Indication: BIPOLAR DISORDER
     Route: 048
     Dates: start: 20051201
  2. SEROQUEL [Suspect]
     Indication: PSYCHOTIC DISORDER
     Route: 048
     Dates: start: 20051201
  3. DEPAKOTE [Concomitant]
  4. DEPAKOTE [Concomitant]
     Dosage: TITRATED UP

REACTIONS (7)
  - ASTHENIA [None]
  - DIABETES MELLITUS NON-INSULIN-DEPENDENT [None]
  - DYSPEPSIA [None]
  - FATIGUE [None]
  - HEART RATE INCREASED [None]
  - MUSCLE TWITCHING [None]
  - SUICIDAL IDEATION [None]
